FAERS Safety Report 6006026-9 (Version None)
Quarter: 2008Q4

REPORT INFORMATION
  Report Type: 
  Country: None (occurrence: None)
  Receive Date: 20081217
  Receipt Date: 20071228
  Transmission Date: 20090506
  Serious: No
  Sender: FDA-Public Use
  Company Number: US-AMGEN-KDL258486

PATIENT

DRUGS (2)
  1. ENBREL [Suspect]
     Indication: RHEUMATOID ARTHRITIS
     Route: 058
     Dates: start: 20060915
  2. HYDROXYCHLOROQUINE SULFATE [Concomitant]
     Dates: start: 19900101

REACTIONS (5)
  - ASTHENIA [None]
  - INFLUENZA [None]
  - PAIN [None]
  - URINARY TRACT INFECTION [None]
  - WHITE BLOOD CELLS URINE POSITIVE [None]
